FAERS Safety Report 6016200-3 (Version None)
Quarter: 2008Q4

REPORT INFORMATION
  Report Type: 
  Country: None (occurrence: None)
  Receive Date: 20081218
  Receipt Date: 20081211
  Transmission Date: 20090506
  Serious: Yes (Life-Threatening, Hospitalization)
  Sender: FDA-Public Use
  Company Number: MSTR-PR-0812L-0141

PATIENT
  Age: 32 Year
  Sex: Male

DRUGS (1)
  1. METASTRON [Suspect]
     Indication: METASTATIC PAIN
     Dosage: 148 MBQ, SINGLE DOSE, I.V.
     Route: 042
     Dates: start: 20070101, end: 20070101

REACTIONS (16)
  - BLOOD ALBUMIN DECREASED [None]
  - BLOOD MAGNESIUM DECREASED [None]
  - ELECTROCARDIOGRAM QT PROLONGED [None]
  - HUMERUS FRACTURE [None]
  - HYPOCALCAEMIA [None]
  - INADEQUATE ANALGESIA [None]
  - METASTASES TO BONE [None]
  - MYOCLONUS [None]
  - NEUROTOXICITY [None]
  - PARAESTHESIA [None]
  - PATHOLOGICAL FRACTURE [None]
  - PNEUMONIA [None]
  - SOMNOLENCE [None]
  - TETANY [None]
  - THROMBOCYTOPENIA [None]
  - VITAMIN D DEFICIENCY [None]
